FAERS Safety Report 6356371-2 (Version None)
Quarter: 2009Q3

REPORT INFORMATION
  Report Type: 
  Country: None (occurrence: None)
  Receive Date: 20090915
  Receipt Date: 20090909
  Transmission Date: 20100115
  Serious: Yes (Life-Threatening, Hospitalization, Other)
  Sender: FDA-Public Use
  Company Number: US-ROXANE LABORATORIES, INC.-2009-RO-00927RO

PATIENT
  Age: 55 Year
  Sex: Female

DRUGS (6)
  1. PREDNISONE [Suspect]
     Indication: AUTOIMMUNE HEPATITIS
  2. AZATHIOPRINE [Suspect]
     Indication: IMMUNOSUPPRESSANT DRUG THERAPY
  3. AZATHIOPRINE [Suspect]
     Dosage: 50 MG
  4. AZATHIOPRINE [Suspect]
     Dosage: 100 MG
  5. AZATHIOPRINE [Suspect]
     Dosage: 150 MG
  6. TRIMETHOPRIM + SULFAMETHOXAZOLE [Suspect]
     Indication: ANTIFUNGAL PROPHYLAXIS

REACTIONS (7)
  - ALANINE AMINOTRANSFERASE INCREASED [None]
  - AUTOIMMUNE HEPATITIS [None]
  - BLOOD HIV RNA INCREASED [None]
  - CD4 LYMPHOCYTES DECREASED [None]
  - HYPERGLYCAEMIA [None]
  - PNEUMONIA [None]
  - RESPIRATORY FAILURE [None]
